FAERS Safety Report 5448032-9 (Version None)
Quarter: 2007Q3

REPORT INFORMATION
  Report Type: 
  Country: None (occurrence: None)
  Receive Date: 20070910
  Receipt Date: 20070829
  Transmission Date: 20080115
  Serious: Yes (Other)
  Sender: FDA-Public Use
  Company Number: US-PFIZER INC-2007073037

PATIENT
  Sex: Female
  Weight: 77.6 kg

DRUGS (3)
  1. LYRICA [Suspect]
     Indication: NEURALGIA
  2. INDERAL [Concomitant]
  3. ANTIMIGRAINE PREPARATIONS [Concomitant]

REACTIONS (7)
  - ABASIA [None]
  - CARPAL TUNNEL SYNDROME [None]
  - DYSARTHRIA [None]
  - EYE MOVEMENT DISORDER [None]
  - FIBROMYALGIA [None]
  - INCOHERENT [None]
  - SPEECH DISORDER [None]
